FAERS Safety Report 6522737-0 (Version None)
Quarter: 2009Q4

REPORT INFORMATION
  Report Type: 
  Country: None (occurrence: None)
  Receive Date: 20091230
  Receipt Date: 20091218
  Transmission Date: 20100525
  Serious: Yes (Other)
  Sender: FDA-Public Use
  Company Number: US-MYLANLABS-2009S1020857

PATIENT
  Age: 81 Year
  Sex: Female
  Weight: 56.7 kg

DRUGS (13)
  1. FENTANYL CITRATE [Suspect]
     Indication: BACK PAIN
     Dosage: Q72HR
     Route: 062
     Dates: start: 20080201, end: 20090501
  2. FENTANYL CITRATE [Suspect]
     Dosage: Q72HR
     Route: 062
     Dates: start: 20090501, end: 20090101
  3. FENTANYL CITRATE [Suspect]
     Dosage: Q72H
     Route: 062
     Dates: start: 20090101, end: 20090101
  4. LEVOTHYROXINE SODIUM [Concomitant]
     Route: 048
  5. PROTONIX [Concomitant]
     Route: 048
  6. RITALIN [Concomitant]
     Route: 048
     Dates: start: 20090501, end: 20090601
  7. DIOVAN [Concomitant]
     Route: 048
  8. AMLODIPINE [Concomitant]
     Route: 048
  9. SPIRONOLACTONE [Concomitant]
     Route: 048
  10. GABAPENTIN [Concomitant]
     Route: 048
  11. PAXIL [Concomitant]
     Route: 048
  12. WARFARIN [Concomitant]
  13. CALCIUM + VITAMIN D [Concomitant]

REACTIONS (7)
  - ABDOMINAL PAIN UPPER [None]
  - DECREASED APPETITE [None]
  - FALL [None]
  - MUSCLE SPASMS [None]
  - SPINAL COMPRESSION FRACTURE [None]
  - TREMOR [None]
  - WEIGHT DECREASED [None]
